FAERS Safety Report 20688620 (Version 1)
Quarter: 2022Q2

REPORT INFORMATION
  Report Type: Spontaneous
  Country: US (occurrence: None)
  Receive Date: 20220408
  Receipt Date: 20220408
  Transmission Date: 20220721
  Serious: Yes (Other)
  Sender: FDA-Public Use
  Company Number: US-Laurus-001236

PATIENT
  Age: 35 Year
  Sex: Female

DRUGS (3)
  1. ATAZANAVIR [Suspect]
     Active Substance: ATAZANAVIR
     Indication: HIV infection
     Dosage: 01 COURSE 400 MG/DAY ORAL
     Route: 048
     Dates: start: 20200925
  2. TIVICAY [Suspect]
     Active Substance: DOLUTEGRAVIR SODIUM
     Indication: HIV infection
     Dosage: 01 COURSE 50 MG/DAY ORAL
     Route: 048
     Dates: start: 20200925
  3. LAMIVUDINE [Suspect]
     Active Substance: LAMIVUDINE
     Indication: HIV infection
     Dosage: 01 COURCE 300 MG/DAY ORAL
     Route: 048
     Dates: start: 20160330

REACTIONS (2)
  - Abortion induced [Unknown]
  - Exposure during pregnancy [Unknown]

NARRATIVE: CASE EVENT DATE: 20220210
